FAERS Safety Report 17744995 (Version 1)
Quarter: 2020Q2

REPORT INFORMATION
  Report Type: Spontaneous
  Country: US (occurrence: US)
  Receive Date: 20200504
  Receipt Date: 20200504
  Transmission Date: 20200714
  Serious: No
  Sender: FDA-Public Use
  Company Number: None

PATIENT
  Age: 35 Year
  Sex: Female

DRUGS (1)
  1. HYDROXYPROGEST CAPR SDV 250MG/ML AUROMEDICS PHARMA [Suspect]
     Active Substance: HYDROXYPROGESTERONE CAPROATE
     Indication: PRENATAL CARE
     Route: 030
     Dates: start: 20200213

REACTIONS (2)
  - Incorrect dose administered [None]
  - Wrong technique in product usage process [None]

NARRATIVE: CASE EVENT DATE: 20200503
